FAERS Safety Report 24712659 (Version 2)
Quarter: 2025Q1

REPORT INFORMATION
  Report Type: Spontaneous
  Country: US (occurrence: US)
  Receive Date: 20241209
  Receipt Date: 20250114
  Transmission Date: 20250409
  Serious: No
  Sender: PFIZER
  Company Number: US-PFIZER INC-PV202400159833

PATIENT
  Age: 72 Year
  Sex: Female

DRUGS (1)
  1. NURTEC ODT [Suspect]
     Active Substance: RIMEGEPANT SULFATE
     Indication: Prophylaxis
     Dosage: 75 MG, ALTERNATE DAY
     Route: 048

REACTIONS (2)
  - Hypoaesthesia [Unknown]
  - Drug ineffective [Unknown]
